FAERS Safety Report 7484868-0 (Version None)
Quarter: 2011Q2

REPORT INFORMATION
  Report Type: 
  Country: None (occurrence: None)
  Receive Date: 20110517
  Receipt Date: 20090604
  Transmission Date: 20111010
  Serious: Yes (Hospitalization)
  Sender: FDA-Public Use
  Company Number: A0791922A

PATIENT
  Age: 49 Year
  Sex: Male

DRUGS (1)
  1. AVANDIA [Suspect]
     Indication: DIABETES MELLITUS
     Dosage: 4MG PER DAY
     Route: 048
     Dates: start: 19990101, end: 20060101

REACTIONS (5)
  - CARDIOVASCULAR DISORDER [None]
  - PALPITATIONS [None]
  - DYSPNOEA [None]
  - MYOCARDIAL INFARCTION [None]
  - HYPERTENSION [None]
